FAERS Safety Report 5603392-0 (Version None)
Quarter: 2008Q1

REPORT INFORMATION
  Report Type: 
  Country: None (occurrence: None)
  Receive Date: 20080123
  Receipt Date: 20080109
  Transmission Date: 20080703
  Serious: Yes (Other)
  Sender: FDA-Public Use
  Company Number: 8028563

PATIENT
  Age: 49 Year
  Sex: Female

DRUGS (1)
  1. XUSAL [Suspect]
     Indication: RHINITIS ALLERGIC
     Dosage: 1 DF /D
     Dates: start: 20070613

REACTIONS (2)
  - ALTERED STATE OF CONSCIOUSNESS [None]
  - ROAD TRAFFIC ACCIDENT [None]
